FAERS Safety Report 11612669 (Version 3)
Quarter: 2020Q2

REPORT INFORMATION
  Report Type: Spontaneous
  Country: US (occurrence: US)
  Receive Date: 20151008
  Receipt Date: 20200512
  Transmission Date: 20200713
  Serious: Yes (Hospitalization)
  Sender: FDA-Public Use
  Company Number: US-JNJFOC-20150923606

PATIENT
  Age: 44 Year
  Sex: Male

DRUGS (4)
  1. COUMADIN [Suspect]
     Active Substance: WARFARIN SODIUM
     Indication: THROMBOSIS
     Route: 065
     Dates: start: 201310
  2. HEPARIN [Suspect]
     Active Substance: HEPARIN SODIUM
     Indication: HAEMORRHAGE
     Route: 065
  3. XARELTO [Suspect]
     Active Substance: RIVAROXABAN
     Indication: THROMBOSIS
     Dosage: THEN 20 MG ONCE DAILY
     Route: 048
     Dates: start: 20130822, end: 20130901
  4. XARELTO [Suspect]
     Active Substance: RIVAROXABAN
     Indication: DEEP VEIN THROMBOSIS

REACTIONS (3)
  - Acute kidney injury [Recovered/Resolved]
  - Intra-abdominal haemorrhage [Recovered/Resolved]
  - Haemothorax [Recovered/Resolved]

NARRATIVE: CASE EVENT DATE: 201309
